FAERS Safety Report 4677846-8 (Version None)
Quarter: 2005Q2

REPORT INFORMATION
  Report Type: 
  Country: None (occurrence: None)
  Receive Date: 20050527
  Receipt Date: 20050527
  Transmission Date: 20051028
  Serious: Yes (Hospitalization)
  Sender: FDA-Public Use
  Company Number: None

PATIENT
  Age: 75 Year
  Sex: Female

DRUGS (2)
  1. OMNIPAQUE 180 [Suspect]
     Indication: LUMBAR RADICULOPATHY
     Dosage: 10 MG INTRATHECAL
     Route: 037
     Dates: start: 20050211
  2. LIDOCAINE 1% [Suspect]

REACTIONS (1)
  - MENINGITIS [None]
